FAERS Safety Report 8695166 (Version 2)
Quarter: 2013Q4

REPORT INFORMATION
  Report Type: Spontaneous
  Country: US (occurrence: US)
  Receive Date: 20120731
  Receipt Date: 20131107
  Transmission Date: 20140711
  Serious: Yes (Other)
  Sender: FDA-Public Use
  Company Number: US-009507513-1207USA009845

PATIENT
  Age: 66 Year
  Sex: Male

DRUGS (3)
  1. ZOCOR [Suspect]
     Dosage: 20 MG, UNK
     Route: 048
  2. AMLODIPINE BESYLATE [Suspect]
     Dosage: 5 MG, UNK
     Route: 048
  3. ASPIRIN [Concomitant]
     Dosage: 75 MG, UNK
     Route: 048

REACTIONS (6)
  - Feeling cold [Unknown]
  - Peripheral coldness [Unknown]
  - Chills [Unknown]
  - Raynaud^s phenomenon [Unknown]
  - Renal impairment [Unknown]
  - Nocturia [Unknown]
